FAERS Safety Report 24223798 (Version 1)
Quarter: 2024Q3

REPORT INFORMATION
  Report Type: Spontaneous
  Country: US (occurrence: None)
  Receive Date: 20240819
  Receipt Date: 20240819
  Transmission Date: 20241016
  Serious: No
  Sender: ASTRAZENECA
  Company Number: 2024A183964

PATIENT
  Age: 20189 Day
  Sex: Female

DRUGS (1)
  1. TEZSPIRE [Suspect]
     Active Substance: TEZEPELUMAB-EKKO
     Dosage: 210.0MG UNKNOWN
     Route: 058

REACTIONS (5)
  - Arthropod bite [Unknown]
  - Device leakage [Unknown]
  - Diabetes mellitus [Unknown]
  - Immune system disorder [Unknown]
  - Product use issue [Unknown]

NARRATIVE: CASE EVENT DATE: 20240807
